FAERS Safety Report 21294455 (Version 1)
Quarter: 2022Q3

REPORT INFORMATION
  Report Type: Spontaneous
  Country: US (occurrence: US)
  Receive Date: 20220905
  Receipt Date: 20220905
  Transmission Date: 20221027
  Serious: Yes (Other)
  Sender: FDA-Public Use
  Company Number: US-SA-SAC20220901001765

PATIENT

DRUGS (4)
  1. ZANTAC [Suspect]
     Active Substance: RANITIDINE HYDROCHLORIDE
     Dosage: UNK,PRESCRIPTION ZANTAC FROM APPROXIMATELY 2005 TO 2009
     Route: 048
     Dates: start: 2005, end: 2009
  2. ZANTAC [Suspect]
     Active Substance: RANITIDINE HYDROCHLORIDE
     Dosage: UNK, OVER THE COUNTER ZANTAC FROM APPROXIMATELY 2005 TO 2009
     Route: 048
     Dates: start: 2005, end: 2009
  3. RANITIDINE [Suspect]
     Active Substance: RANITIDINE
     Dosage: UNK,OVER THE COUNTER FROM APPROXIMATELY 2005 TO 2009
     Dates: start: 2005, end: 2009
  4. RANITIDINE [Suspect]
     Active Substance: RANITIDINE
     Dosage: UNK, PRESCRIPTION RANITIDINE FROM APPROXIMATELY 2005 TO 2009
     Dates: start: 2005, end: 2009

REACTIONS (1)
  - Breast cancer [Unknown]
